FAERS Safety Report 25280471 (Version 2)
Quarter: 2025Q3

REPORT INFORMATION
  Report Type: Spontaneous
  Country: JP (occurrence: JP)
  Receive Date: 20250508
  Receipt Date: 20250804
  Transmission Date: 20251020
  Serious: Yes (Death)
  Sender: AMGEN
  Company Number: JP-BEH-2025201621

PATIENT
  Age: 84 Year
  Sex: Female

DRUGS (2)
  1. TAVNEOS [Suspect]
     Active Substance: AVACOPAN
     Indication: Microscopic polyangiitis
     Route: 048
  2. PREDNISOLONE [Concomitant]
     Active Substance: PREDNISOLONE
     Indication: Product used for unknown indication
     Dosage: 45 MG, QD
     Route: 065

REACTIONS (1)
  - Pneumocystis jirovecii pneumonia [Fatal]
